FAERS Safety Report 5219985-9 (Version None)
Quarter: 2007Q1

REPORT INFORMATION
  Report Type: 
  Country: None (occurrence: None)
  Receive Date: 20070125
  Receipt Date: 20070117
  Transmission Date: 20070707
  Serious: Yes (Hospitalization)
  Sender: FDA-Public Use
  Company Number: JP-PFIZER INC-2007006156

PATIENT
  Age: 88 Year
  Sex: Male

DRUGS (3)
  1. DETRUSITOL SR [Suspect]
     Indication: HYPERTONIC BLADDER
     Dosage: DAILY DOSE:2MG
     Route: 048
     Dates: start: 20061212, end: 20070103
  2. LASIX [Concomitant]
  3. BLOPRESS [Concomitant]

REACTIONS (2)
  - BLOOD CHOLESTEROL INCREASED [None]
  - NEPHROTIC SYNDROME [None]
